FAERS Safety Report 18017744 (Version 3)
Quarter: 2020Q4

REPORT INFORMATION
  Report Type: Report from Study
  Country: RU (occurrence: RU)
  Receive Date: 20200714
  Receipt Date: 20201005
  Transmission Date: 20210113
  Serious: Yes (Life-Threatening, Hospitalization)
  Sender: FDA-Public Use
  Company Number: RU-CLOVIS ONCOLOGY-CLO-2020-001272

PATIENT

DRUGS (4)
  1. RUCAPARIB [Suspect]
     Active Substance: RUCAPARIB
     Indication: OVARIAN CANCER
     Dosage: 600 MG, BID
     Route: 048
     Dates: start: 20191230, end: 20200523
  2. NIVOLUMAB [Suspect]
     Active Substance: NIVOLUMAB
     Dosage: UNK
     Dates: start: 20200716
  3. RUCAPARIB [Suspect]
     Active Substance: RUCAPARIB
     Dosage: 500 MG, BID
     Dates: start: 20200716
  4. NIVOLUMAB [Suspect]
     Active Substance: NIVOLUMAB
     Indication: OVARIAN CANCER
     Dosage: 480 MG, Q28CYCLICAL
     Route: 042
     Dates: start: 20200127, end: 20200423

REACTIONS (1)
  - Anaemia [Recovered/Resolved]

NARRATIVE: CASE EVENT DATE: 20200611
